FAERS Safety Report 7363387-6 (Version None)
Quarter: 2011Q1

REPORT INFORMATION
  Report Type: 
  Country: None (occurrence: None)
  Receive Date: 20110321
  Receipt Date: 20110308
  Transmission Date: 20110831
  Serious: Yes (Hospitalization)
  Sender: FDA-Public Use
  Company Number: US-JNJFOC-20080703371

PATIENT
  Sex: Female
  Weight: 34.6 kg

DRUGS (7)
  1. VANCOMYCIN [Concomitant]
  2. PREVACID [Concomitant]
  3. MESALAMINE [Concomitant]
     Route: 048
  4. ZOSYN [Concomitant]
  5. PREDNISONE [Concomitant]
  6. INFLIXIMAB [Suspect]
     Indication: COLITIS ULCERATIVE
     Dosage: 1ST INFUSION
     Route: 042
  7. INFLIXIMAB [Suspect]
     Dosage: MOST RECENT INFUSION
     Route: 042

REACTIONS (1)
  - COLITIS ULCERATIVE [None]
